FAERS Safety Report 5063051-2 (Version None)
Quarter: 2006Q3

REPORT INFORMATION
  Report Type: 
  Country: None (occurrence: None)
  Receive Date: 20060724
  Receipt Date: 20060715
  Transmission Date: 20061208
  Serious: Yes (Hospitalization)
  Sender: FDA-Public Use
  Company Number: 2006-07-1019

PATIENT
  Age: 46 Year
  Sex: Male
  Weight: 117.9352 kg

DRUGS (4)
  1. PEG-INTRON [Suspect]
     Indication: HEPATITIS C
     Dosage: SUBCUTANEOUS
     Route: 058
     Dates: start: 20060520
  2. REBETOL [Suspect]
     Indication: HEPATITIS C
     Dosage: ORAL
     Route: 048
     Dates: start: 20060520
  3. HYDROCHLOROTHIAZIDE TABLETS [Concomitant]
  4. ATENOLOL [Concomitant]

REACTIONS (8)
  - CHILLS [None]
  - DYSPNOEA [None]
  - FEELING HOT [None]
  - HAEMATEMESIS [None]
  - HYPERHIDROSIS [None]
  - PYREXIA [None]
  - VOMITING [None]
  - WEIGHT DECREASED [None]
